FAERS Safety Report 8293479-9 (Version None)
Quarter: 2012Q2

REPORT INFORMATION
  Report Type: 
  Country: None (occurrence: None)
  Receive Date: 20120417
  Receipt Date: 20120404
  Transmission Date: 20120825
  Serious: Yes (Other)
  Sender: FDA-Public Use
  Company Number: TR-MYLANLABS-2012S1007494

PATIENT
  Age: 2 Day
  Sex: Male

DRUGS (2)
  1. PHENYTOIN [Suspect]
     Indication: PARTIAL SEIZURES
     Dosage: 200 MG/DAY
     Route: 064
  2. VALPROIC ACID [Suspect]
     Indication: PARTIAL SEIZURES
     Dosage: 600 MG/DAY
     Route: 064

REACTIONS (14)
  - FEELING JITTERY [None]
  - DYSPNOEA [None]
  - CYANOSIS [None]
  - HYPOGLYCAEMIA [None]
  - TACHYPNOEA [None]
  - HYPOTONIA [None]
  - BLOOD CREATINE PHOSPHOKINASE INCREASED [None]
  - DRUG WITHDRAWAL SYNDROME NEONATAL [None]
  - USE OF ACCESSORY RESPIRATORY MUSCLES [None]
  - FOETAL EXPOSURE DURING PREGNANCY [None]
  - BRADYCARDIA [None]
  - ASPARTATE AMINOTRANSFERASE INCREASED [None]
  - BLOOD CREATINE PHOSPHOKINASE MB INCREASED [None]
  - BLOOD LACTATE DEHYDROGENASE INCREASED [None]
